FAERS Safety Report 11339583 (Version 1)
Quarter: 2015Q3

REPORT INFORMATION
  Report Type: Report from Study
  Country: US (occurrence: US)
  Receive Date: 20150805
  Receipt Date: 20150805
  Transmission Date: 20151125
  Serious: No
  Sender: FDA-Public Use
  Company Number: PHEH2015US008366

PATIENT
  Sex: Male

DRUGS (3)
  1. TEGRETOL-XR [Suspect]
     Active Substance: CARBAMAZEPINE
     Indication: SEIZURE
     Dosage: 400 MG, UNK (600 MG EVERY MORNING AND 800 MG EVERY EVENING)
     Route: 048
  2. CARBAMAZEPINE. [Suspect]
     Active Substance: CARBAMAZEPINE
     Indication: SEIZURE
     Dosage: UNK
     Route: 065
  3. TEGRETOL-XR [Suspect]
     Active Substance: CARBAMAZEPINE
     Dosage: 200 MG, UNK (600 MG EVERY MORNING AND 800 MG EVERY EVENING)
     Route: 048

REACTIONS (1)
  - Drug ineffective [Unknown]
